FAERS Safety Report 5318171-1 (Version None)
Quarter: 2007Q2

REPORT INFORMATION
  Report Type: 
  Country: None (occurrence: None)
  Receive Date: 20070507
  Receipt Date: 20070425
  Transmission Date: 20071010
  Serious: Yes (Hospitalization, Other)
  Sender: FDA-Public Use
  Company Number: DE-PFIZER INC-2007021977

PATIENT
  Sex: Female
  Weight: 80 kg

DRUGS (4)
  1. DEPO-CLINOVIR [Suspect]
     Indication: MENORRHAGIA
     Dosage: FREQ:1ST INJECTION
     Route: 030
     Dates: start: 20070212, end: 20070212
  2. DEPO-CLINOVIR [Suspect]
     Indication: IRON DEFICIENCY ANAEMIA
  3. SABRIL [Concomitant]
     Indication: EPILEPSY
     Route: 048
  4. OSPOLOT [Concomitant]
     Indication: EPILEPSY
     Route: 048

REACTIONS (4)
  - CERVICITIS [None]
  - ENDOMETRIAL HYPERPLASIA [None]
  - MENORRHAGIA [None]
  - UTERINE POLYP [None]
